FAERS Safety Report 5611035-5 (Version None)
Quarter: 2008Q1

REPORT INFORMATION
  Report Type: 
  Country: None (occurrence: None)
  Receive Date: 20080201
  Receipt Date: 20080125
  Transmission Date: 20080703
  Serious: Yes (Other)
  Sender: FDA-Public Use
  Company Number: B0506012A

PATIENT
  Age: 62 Year
  Sex: Female

DRUGS (1)
  1. REQUIP [Suspect]
     Route: 048
     Dates: start: 20071217, end: 20071221

REACTIONS (3)
  - OCULAR HYPERAEMIA [None]
  - PHARYNGOLARYNGEAL PAIN [None]
  - SUDDEN ONSET OF SLEEP [None]
